FAERS Safety Report 5262896-3 (Version None)
Quarter: 2007Q1

REPORT INFORMATION
  Report Type: 
  Country: None (occurrence: None)
  Receive Date: 20070312
  Receipt Date: 20070301
  Transmission Date: 20070707
  Serious: Yes (Other)
  Sender: FDA-Public Use
  Company Number: US-ROCHE-485149

PATIENT
  Age: 41 Year
  Sex: Female

DRUGS (2)
  1. PEGASYS [Suspect]
     Route: 065
     Dates: start: 20070103
  2. RIBAVIRIN [Suspect]
     Route: 065
     Dates: start: 20070103

REACTIONS (7)
  - ABDOMINAL DISTENSION [None]
  - CONFUSIONAL STATE [None]
  - DISORIENTATION [None]
  - DYSPHONIA [None]
  - DYSPNOEA [None]
  - ORAL DISCOMFORT [None]
  - WEIGHT INCREASED [None]
